FAERS Safety Report 10084739 (Version 1)
Quarter: 2014Q2

REPORT INFORMATION
  Report Type: Report from Study
  Country: BE (occurrence: BE)
  Receive Date: 20140417
  Receipt Date: 20140417
  Transmission Date: 20141212
  Serious: Yes (Hospitalization)
  Sender: FDA-Public Use
  Company Number: BE-CELGENEUS-013-21660-14041329

PATIENT
  Age: 49 Year
  Sex: Female
  Weight: 61.8 kg

DRUGS (16)
  1. ABRAXANE [Suspect]
     Indication: PANCREATIC CARCINOMA
     Route: 041
     Dates: start: 20140224
  2. GEMCITABINE [Suspect]
     Indication: PANCREATIC CARCINOMA
     Route: 065
     Dates: start: 20140224
  3. LITICAN [Concomitant]
     Indication: PREMEDICATION
     Route: 041
     Dates: start: 20140224
  4. LITICAN [Concomitant]
     Indication: NAUSEA
     Route: 048
     Dates: start: 20140310
  5. SOLUMEDROL [Concomitant]
     Indication: PREMEDICATION
     Route: 041
     Dates: start: 20140224
  6. DAFALGAN [Concomitant]
     Indication: PAIN
     Route: 048
     Dates: start: 20140224
  7. OXYCONTIN [Concomitant]
     Indication: PAIN
     Route: 048
     Dates: start: 20140224
  8. OXYNORM [Concomitant]
     Indication: PAIN
     Route: 048
     Dates: start: 20140224
  9. PRIMPERAN [Concomitant]
     Indication: NAUSEA
     Route: 048
     Dates: start: 20140310
  10. GABAPENTINE [Concomitant]
     Indication: PAIN
     Route: 048
     Dates: start: 20140310, end: 20140323
  11. GABAPENTINE [Concomitant]
     Route: 048
     Dates: start: 20140324
  12. LORMETAZEPAM [Concomitant]
     Indication: PROPHYLAXIS
     Route: 048
     Dates: start: 20140310
  13. INNOHEP [Concomitant]
     Indication: PROPHYLAXIS
     Route: 058
     Dates: start: 20140310
  14. FEMOSTAN [Concomitant]
     Indication: PROPHYLAXIS
     Route: 048
  15. PANTOZOL [Concomitant]
     Indication: PROPHYLAXIS
     Route: 048
     Dates: start: 20140331
  16. ALDACTONE [Concomitant]
     Indication: OEDEMA
     Route: 048
     Dates: start: 20140331

REACTIONS (1)
  - Capillary leak syndrome [Not Recovered/Not Resolved]
